FAERS Safety Report 8064567-7 (Version None)
Quarter: 2012Q1

REPORT INFORMATION
  Report Type: 
  Country: None (occurrence: None)
  Receive Date: 20120123
  Receipt Date: 20120118
  Transmission Date: 20120608
  Serious: Yes (Death, Hospitalization, Other)
  Sender: FDA-Public Use
  Company Number: BR-ABBOTT-12P-020-0894812-00

PATIENT
  Sex: Female
  Weight: 70 kg

DRUGS (2)
  1. UNSPECIFIED ANTI-INFLAMMATORY [Concomitant]
     Indication: PAIN
  2. HUMIRA [Suspect]
     Indication: RHEUMATOID ARTHRITIS
     Route: 058
     Dates: start: 20101227

REACTIONS (9)
  - HEPATIC CIRRHOSIS [None]
  - HAEMATEMESIS [None]
  - HEPATITIS [None]
  - HEPATIC FAILURE [None]
  - SEPSIS [None]
  - MULTI-ORGAN FAILURE [None]
  - RENAL FAILURE [None]
  - ASTHENIA [None]
  - GASTRIC HAEMORRHAGE [None]
